FAERS Safety Report 7657489-4 (Version None)
Quarter: 2011Q3

REPORT INFORMATION
  Report Type: 
  Country: None (occurrence: None)
  Receive Date: 20110804
  Receipt Date: 20110726
  Transmission Date: 20111222
  Serious: Yes (Other)
  Sender: FDA-Public Use
  Company Number: BR-ASTRAZENECA-2011SE45214

PATIENT
  Age: 75 Year
  Sex: Female
  Weight: 84 kg

DRUGS (6)
  1. GLIMEPIRIDE [Concomitant]
     Route: 048
     Dates: start: 20050101
  2. LEVOTHYROXINE SODIUM [Concomitant]
     Route: 048
     Dates: start: 20050101
  3. ALLOPURINOL [Concomitant]
     Route: 048
     Dates: start: 20050101
  4. METFORMIN HCL [Concomitant]
     Route: 048
     Dates: start: 20050101
  5. ATACAND [Suspect]
     Indication: HYPERTENSION
     Route: 048
     Dates: start: 20050101, end: 20110501
  6. JANUVIA [Concomitant]
     Route: 048
     Dates: start: 20050101

REACTIONS (3)
  - BLOOD PRESSURE INADEQUATELY CONTROLLED [None]
  - DRUG INEFFECTIVE [None]
  - MUSCLE SPASMS [None]
